FAERS Safety Report 14662108 (Version 1)
Quarter: 2018Q1

REPORT INFORMATION
  Report Type: Spontaneous
  Country: CN (occurrence: CN)
  Receive Date: 20180321
  Receipt Date: 20180321
  Transmission Date: 20180509
  Serious: Yes (Other)
  Sender: FDA-Public Use
  Company Number: CN-ABBVIE-18P-035-2289479-00

PATIENT
  Age: 63 Year
  Sex: Female

DRUGS (3)
  1. QUETIAPINE FUMARATE. [Concomitant]
     Active Substance: QUETIAPINE FUMARATE
     Indication: PRODUCT USED FOR UNKNOWN INDICATION
     Route: 065
     Dates: start: 20171226, end: 20180104
  2. DEPAKINE CHRONO [Suspect]
     Active Substance: VALPROATE SODIUM
     Indication: SCHIZOPHRENIA
     Route: 048
     Dates: start: 20171226, end: 20180104
  3. DEPAKINE CHRONO [Suspect]
     Active Substance: VALPROATE SODIUM
     Route: 048

REACTIONS (1)
  - Myocardial necrosis marker increased [Recovered/Resolved]

NARRATIVE: CASE EVENT DATE: 20180104
